FAERS Safety Report 9474223 (Version 1)
Quarter: 2013Q3

REPORT INFORMATION
  Report Type: Report from Study
  Country: US (occurrence: US)
  Receive Date: 20130823
  Receipt Date: 20130823
  Transmission Date: 20140515
  Serious: Yes (Hospitalization, Other)
  Sender: FDA-Public Use
  Company Number: US-ABBOTT-13P-163-1134590-00

PATIENT
  Sex: Female
  Weight: 51.3 kg

DRUGS (5)
  1. HUMIRA [Suspect]
     Indication: RHEUMATOID ARTHRITIS
     Dates: start: 2008, end: 2010
  2. HUMIRA [Suspect]
     Indication: CROHN^S DISEASE
     Dates: start: 2011, end: 201212
  3. HUMIRA [Suspect]
     Indication: SERONEGATIVE ARTHRITIS
     Dates: start: 201306
  4. PAXIL [Concomitant]
     Indication: GENERALISED ANXIETY DISORDER
  5. IUD NOS [Concomitant]
     Indication: CONTRACEPTION

REACTIONS (24)
  - Hepatic adenoma [Unknown]
  - Hepatic mass [Unknown]
  - Hepatic mass [Recovered/Resolved]
  - Focal nodular hyperplasia [Unknown]
  - Hepatic adenoma [Unknown]
  - Oesophageal oedema [Unknown]
  - Gastrooesophageal reflux disease [Unknown]
  - Gastrointestinal oedema [Unknown]
  - Ileal ulcer [Not Recovered/Not Resolved]
  - Large intestinal ulcer [Unknown]
  - Enteritis [Not Recovered/Not Resolved]
  - Eosinophil count increased [Unknown]
  - Abdominal pain [Recovered/Resolved]
  - Vomiting [Unknown]
  - Pain [Unknown]
  - Nausea [Recovered/Resolved]
  - Crohn^s disease [Unknown]
  - Arthritis [Unknown]
  - Crohn^s disease [Unknown]
  - Arthritis [Unknown]
  - Diarrhoea [Recovered/Resolved]
  - Off label use [Not Recovered/Not Resolved]
  - Abdominal distension [Recovered/Resolved]
  - Diarrhoea [Recovered/Resolved]
